FAERS Safety Report 12475657 (Version 2)
Quarter: 2016Q3

REPORT INFORMATION
  Report Type: Spontaneous
  Country: SE (occurrence: SE)
  Receive Date: 20160617
  Receipt Date: 20160719
  Transmission Date: 20161109
  Serious: Yes (Hospitalization)
  Sender: FDA-Public Use
  Company Number: SE-OTSUKA-2016_012792

PATIENT
  Age: 32 Year
  Sex: Female

DRUGS (1)
  1. ABILIFY MAINTENA [Suspect]
     Active Substance: ARIPIPRAZOLE
     Indication: SCHIZOAFFECTIVE DISORDER
     Dosage: 400 MG, QM
     Route: 030
     Dates: start: 201602

REACTIONS (5)
  - Hospitalisation [Unknown]
  - Drug monitoring procedure incorrectly performed [Unknown]
  - Off label use [Unknown]
  - Asthenia [Unknown]
  - Therapeutic response decreased [Unknown]

NARRATIVE: CASE EVENT DATE: 201602
